FAERS Safety Report 6304810-5 (Version None)
Quarter: 2009Q3

REPORT INFORMATION
  Report Type: 
  Country: None (occurrence: None)
  Receive Date: 20090811
  Receipt Date: 20090731
  Transmission Date: 20100115
  Serious: Yes (Hospitalization)
  Sender: FDA-Public Use
  Company Number: US-ROCHE-648113

PATIENT
  Sex: Male

DRUGS (2)
  1. XELODA [Suspect]
     Indication: COLON CANCER
     Route: 065
     Dates: start: 20090106
  2. OXALIPLATIN [Concomitant]
     Indication: COLON CANCER
     Dates: start: 20090608

REACTIONS (5)
  - ABDOMINAL NEOPLASM [None]
  - COLON CANCER [None]
  - HEADACHE [None]
  - MALIGNANT NEOPLASM PROGRESSION [None]
  - RENAL NEOPLASM [None]
